FAERS Safety Report 17999260 (Version 4)
Quarter: 2020Q4

REPORT INFORMATION
  Report Type: Spontaneous
  Country: RU (occurrence: RU)
  Receive Date: 20200709
  Receipt Date: 20201030
  Transmission Date: 20210113
  Serious: Yes (Other)
  Sender: FDA-Public Use
  Company Number: RU-EMD SERONO-9166941

PATIENT
  Age: 55 Year
  Sex: Male

DRUGS (4)
  1. MILDRONATE [Concomitant]
     Active Substance: MELDONIUM
     Indication: PRODUCT USED FOR UNKNOWN INDICATION
     Dosage: TWO OR EVEN THREE TIMES A YEAR AS REQUIRED
  2. NOOTROPIL [Concomitant]
     Active Substance: PIRACETAM
     Indication: PRODUCT USED FOR UNKNOWN INDICATION
  3. URSOSAN [Concomitant]
     Active Substance: URSODIOL
     Indication: PRODUCT USED FOR UNKNOWN INDICATION
  4. GLUCOPHAGE LONG [Suspect]
     Active Substance: METFORMIN HYDROCHLORIDE
     Indication: TYPE 2 DIABETES MELLITUS
     Route: 048
     Dates: start: 2018

REACTIONS (2)
  - Diabetes mellitus [Recovering/Resolving]
  - Headache [Unknown]
